FAERS Safety Report 9668524 (Version 2)
Quarter: 2013Q4

REPORT INFORMATION
  Report Type: Spontaneous
  Country: IL (occurrence: IL)
  Receive Date: 20131105
  Receipt Date: 20131108
  Transmission Date: 20140711
  Serious: Yes (Other)
  Sender: FDA-Public Use
  Company Number: IL-009507513-1311ISR001215

PATIENT
  Age: 63 Year
  Sex: Male

DRUGS (4)
  1. JANUET [Suspect]
     Indication: TYPE 2 DIABETES MELLITUS
     Dosage: 1 DF, BID
     Route: 048
     Dates: start: 2010
  2. OCSAAR [Concomitant]
  3. PLAVIX [Concomitant]
  4. VASODIP [Concomitant]

REACTIONS (1)
  - Pancreatic carcinoma [Unknown]
